FAERS Safety Report 17301415 (Version 1)
Quarter: 2020Q1

REPORT INFORMATION
  Report Type: Spontaneous
  Country: US (occurrence: US)
  Receive Date: 20200122
  Receipt Date: 20200122
  Transmission Date: 20200409
  Serious: Yes (Hospitalization)
  Sender: FDA-Public Use
  Company Number: US-AMNEAL PHARMACEUTICALS-2020-AMRX-00099

PATIENT
  Age: 2 Year
  Sex: Female

DRUGS (2)
  1. VIGABATRIN. [Suspect]
     Active Substance: VIGABATRIN
     Indication: INFANTILE SPASMS
     Dosage: 500 MILLIGRAM, BID
     Route: 048
     Dates: start: 20191113
  2. CBD OIL [Suspect]
     Active Substance: CANNABIDIOL\HERBALS
     Indication: EPILEPSY
     Dosage: UNK
     Route: 065

REACTIONS (2)
  - Hemiparesis [Recovered/Resolved]
  - Drug ineffective [Unknown]

NARRATIVE: CASE EVENT DATE: 20191226
